FAERS Safety Report 6719260-7 (Version None)
Quarter: 2010Q2

REPORT INFORMATION
  Report Type: 
  Country: None (occurrence: None)
  Receive Date: 20100511
  Receipt Date: 20100504
  Transmission Date: 20101027
  Serious: Yes (Other)
  Sender: FDA-Public Use
  Company Number: GB-NAPPMUNDI-GBR-2010-0006508

PATIENT
  Age: 64 Year
  Sex: Male

DRUGS (13)
  1. MORPHINE SULFATE [Suspect]
     Indication: DRUG USE FOR UNKNOWN INDICATION
     Dosage: 30 MG, BID
     Route: 065
     Dates: start: 20090101, end: 20091229
  2. MORPHINE SULFATE [Suspect]
     Dosage: 20 MG, UNK
     Route: 065
     Dates: start: 20091229, end: 20100105
  3. SEVREDOL TABLETS 10 MG [Suspect]
     Indication: DRUG USE FOR UNKNOWN INDICATION
     Dosage: 10 MG, PRN
     Route: 065
     Dates: start: 20090101
  4. BICALUTAMIDE [Concomitant]
     Dosage: 50 MG, UNK
     Dates: start: 20091005
  5. CITALOPRAM [Concomitant]
     Dosage: 40 MG, UNK
     Dates: start: 20090715
  6. ROSUVASTATIN [Concomitant]
     Dosage: 20 MG, UNK
     Dates: start: 20080225
  7. ENALAPRIL MALEATE [Concomitant]
     Dosage: 7.5 MG, UNK
     Dates: start: 20020827
  8. ASPIRIN [Concomitant]
     Dosage: 75 MG, UNK
     Dates: start: 19991126
  9. DEXAMETHASONE [Concomitant]
     Dosage: 2 MG, UNK
     Dates: start: 20100105
  10. TAMSULOSIN HYDROCHLORIDE [Concomitant]
     Dosage: 400 MCG, UNK
     Dates: start: 20090929
  11. TRIPTORELIN [Concomitant]
     Dosage: 11.25 MG, UNK
     Route: 058
     Dates: start: 20090804
  12. BUDESONIDE [Concomitant]
     Dosage: 400 MCG, UNK
     Dates: start: 19990921
  13. NITROGLYCERIN [Concomitant]
     Dosage: 400 MCG, UNK
     Dates: start: 20050317

REACTIONS (3)
  - ABNORMAL DREAMS [None]
  - CONFUSIONAL STATE [None]
  - MYOCLONUS [None]
